FAERS Safety Report 21066987 (Version 1)
Quarter: 2022Q3

REPORT INFORMATION
  Report Type: Spontaneous
  Country: US (occurrence: US)
  Receive Date: 20220712
  Receipt Date: 20220712
  Transmission Date: 20221027
  Serious: No
  Sender: FDA-Public Use
  Company Number: US-ORGANON-O2207USA000396

PATIENT
  Age: 36 Year
  Sex: Male

DRUGS (2)
  1. PROSCAR [Suspect]
     Active Substance: FINASTERIDE
     Indication: Haematospermia
     Dosage: UNK
     Route: 048
  2. CABERGOLINE [Concomitant]
     Active Substance: CABERGOLINE
     Indication: Libido disorder
     Dosage: UNK

REACTIONS (1)
  - Product use in unapproved indication [Unknown]
